FAERS Safety Report 23808576 (Version 2)
Quarter: 2024Q2

REPORT INFORMATION
  Report Type: Spontaneous
  Country: US (occurrence: US)
  Receive Date: 20240502
  Receipt Date: 20240506
  Transmission Date: 20240716
  Serious: Yes (Other)
  Sender: FDA-Public Use
  Company Number: US-PFIZER INC-PV202400057028

PATIENT
  Age: 79 Year
  Sex: Female
  Weight: 66.1 kg

DRUGS (2)
  1. IBRANCE [Suspect]
     Active Substance: PALBOCICLIB
     Indication: Breast cancer
     Dosage: TAKE ONE TABLET (75 MG) BY MOUTH ONCE DAILY WITH FOOD. TAKE FOR 21 DAYS ON THEN OFF FOR 7 DAYS
     Route: 048
  2. FASLODEX [Concomitant]
     Active Substance: FULVESTRANT
     Indication: Inflammatory carcinoma of the breast
     Dosage: UNK

REACTIONS (2)
  - Pancytopenia [Unknown]
  - Fatigue [Unknown]
